FAERS Safety Report 20955625 (Version 1)
Quarter: 2022Q2

REPORT INFORMATION
  Report Type: Spontaneous
  Country: CO (occurrence: CO)
  Receive Date: 20220614
  Receipt Date: 20220614
  Transmission Date: 20220721
  Serious: Yes (Hospitalization, Other)
  Sender: FDA-Public Use
  Company Number: CO-BAXTER-2022BAX010368

PATIENT
  Age: 59 Year
  Sex: Male
  Weight: 61 kg

DRUGS (1)
  1. DIANEAL PD-2 WITH DEXTROSE [Suspect]
     Active Substance: CALCIUM CHLORIDE\DEXTROSE\MAGNESIUM CHLORIDE\SODIUM CHLORIDE\SODIUM LACTATE
     Indication: Peritoneal dialysis
     Dosage: 2 L, QD 4 BAGS
     Route: 033
     Dates: start: 202112, end: 20220425

REACTIONS (5)
  - Peritonitis bacterial [Recovered/Resolved]
  - Enterobacter infection [Recovered/Resolved]
  - Peritoneal cloudy effluent [Recovered/Resolved]
  - Peritoneal dialysis complication [Unknown]
  - Poor sanitation [Unknown]

NARRATIVE: CASE EVENT DATE: 20220421
